FAERS Safety Report 5648320-7 (Version None)
Quarter: 2008Q1

REPORT INFORMATION
  Report Type: 
  Country: None (occurrence: None)
  Receive Date: 20080229
  Receipt Date: 20080225
  Transmission Date: 20080703
  Serious: Yes (Other)
  Sender: FDA-Public Use
  Company Number: 2008SP003987

PATIENT
  Sex: Female

DRUGS (2)
  1. LORATADINE [Suspect]
     Indication: DRUG USE FOR UNKNOWN INDICATION
     Dosage: 1 DF ONCE
     Dates: start: 20080224
  2. DEPAMIDE [Concomitant]

REACTIONS (2)
  - MANIA [None]
  - PYREXIA [None]
